FAERS Safety Report 23838163 (Version 1)
Quarter: 2024Q2

REPORT INFORMATION
  Report Type: Spontaneous
  Country: CA (occurrence: CA)
  Receive Date: 20240509
  Receipt Date: 20240509
  Transmission Date: 20240716
  Serious: Yes (Hospitalization)
  Sender: FDA-Public Use
  Company Number: CA-TEVA-2022-CA-2002871

PATIENT
  Age: 52 Year
  Sex: Female

DRUGS (61)
  1. AMLODIPINE BESYLATE [Suspect]
     Active Substance: AMLODIPINE BESYLATE
     Indication: Hypertension
     Route: 065
  2. SINGULAIR [Suspect]
     Active Substance: MONTELUKAST SODIUM
     Indication: Product used for unknown indication
     Route: 065
  3. SINGULAIR [Suspect]
     Active Substance: MONTELUKAST SODIUM
     Indication: Product used for unknown indication
     Route: 065
  4. ATROVENT [Concomitant]
     Active Substance: IPRATROPIUM BROMIDE
     Indication: Product used for unknown indication
     Route: 065
  5. MOMETASONE [Concomitant]
     Active Substance: MOMETASONE
     Indication: Product used for unknown indication
     Route: 065
  6. PANTOPRAZOLE SODIUM [Concomitant]
     Active Substance: PANTOPRAZOLE SODIUM
     Indication: Product used for unknown indication
     Route: 065
  7. PANTOPRAZOLE SODIUM [Concomitant]
     Active Substance: PANTOPRAZOLE SODIUM
     Indication: Product used for unknown indication
     Route: 065
  8. PANTOPRAZOLE SODIUM [Concomitant]
     Active Substance: PANTOPRAZOLE SODIUM
     Indication: Product used for unknown indication
     Route: 065
  9. PANTOPRAZOLE SODIUM [Concomitant]
     Active Substance: PANTOPRAZOLE SODIUM
     Indication: Product used for unknown indication
     Route: 065
  10. PREDNISONE [Concomitant]
     Active Substance: PREDNISONE
     Indication: Asthma
     Route: 065
  11. PREDNISONE [Concomitant]
     Active Substance: PREDNISONE
     Indication: Asthma
     Route: 048
  12. SODIUM BICARBONATE\SODIUM CHLORIDE [Concomitant]
     Active Substance: SODIUM BICARBONATE\SODIUM CHLORIDE
     Indication: Product used for unknown indication
     Dosage: DOSE FORM: SSOLUTION NASAL
     Route: 065
  13. VENTOLIN [Concomitant]
     Active Substance: ALBUTEROL SULFATE
     Indication: Middle insomnia
     Route: 065
  14. VENTOLIN [Concomitant]
     Active Substance: ALBUTEROL SULFATE
     Indication: Middle insomnia
     Route: 055
  15. VENTOLIN [Concomitant]
     Active Substance: ALBUTEROL SULFATE
     Indication: Middle insomnia
     Route: 055
  16. VENTOLIN [Concomitant]
     Active Substance: ALBUTEROL SULFATE
     Indication: Middle insomnia
     Dosage: TIME INTERVAL: 0.33333333 DAYS
     Route: 065
  17. PULMICORT TURBUHALER [Concomitant]
     Active Substance: BUDESONIDE
     Indication: Product used for unknown indication
     Route: 065
  18. CLINDAMYCIN [Suspect]
     Active Substance: CLINDAMYCIN
     Indication: Product used for unknown indication
     Route: 065
  19. LORAZEPAM [Suspect]
     Active Substance: LORAZEPAM
     Indication: Product used for unknown indication
     Route: 065
  20. LORAZEPAM [Suspect]
     Active Substance: LORAZEPAM
     Indication: Product used for unknown indication
     Route: 065
  21. ZOPICLONE [Suspect]
     Active Substance: ZOPICLONE
     Indication: Product used for unknown indication
     Route: 065
  22. ZOPICLONE [Suspect]
     Active Substance: ZOPICLONE
     Indication: Product used for unknown indication
     Route: 065
  23. ALVESCO [Suspect]
     Active Substance: CICLESONIDE
     Indication: Product used for unknown indication
     Route: 065
  24. ALVESCO [Suspect]
     Active Substance: CICLESONIDE
     Indication: Product used for unknown indication
     Route: 065
  25. BILASTINE [Suspect]
     Active Substance: BILASTINE
     Indication: Product used for unknown indication
     Route: 065
  26. OMALIZUMAB [Suspect]
     Active Substance: OMALIZUMAB
     Indication: Asthma
     Route: 058
  27. OMALIZUMAB [Suspect]
     Active Substance: OMALIZUMAB
     Indication: Asthma
     Route: 058
  28. OMALIZUMAB [Suspect]
     Active Substance: OMALIZUMAB
     Indication: Asthma
     Route: 058
  29. OMALIZUMAB [Suspect]
     Active Substance: OMALIZUMAB
     Indication: Asthma
     Route: 058
  30. OMALIZUMAB [Suspect]
     Active Substance: OMALIZUMAB
     Indication: Asthma
     Route: 058
  31. OMALIZUMAB [Suspect]
     Active Substance: OMALIZUMAB
     Indication: Asthma
     Route: 058
  32. OMALIZUMAB [Suspect]
     Active Substance: OMALIZUMAB
     Indication: Asthma
     Route: 058
  33. OMALIZUMAB [Suspect]
     Active Substance: OMALIZUMAB
     Indication: Asthma
     Route: 058
  34. OMALIZUMAB [Suspect]
     Active Substance: OMALIZUMAB
     Indication: Asthma
     Route: 058
  35. OMALIZUMAB [Suspect]
     Active Substance: OMALIZUMAB
     Indication: Asthma
     Route: 058
  36. OMALIZUMAB [Suspect]
     Active Substance: OMALIZUMAB
     Indication: Asthma
     Route: 058
  37. OMALIZUMAB [Suspect]
     Active Substance: OMALIZUMAB
     Indication: Asthma
     Route: 058
  38. OMALIZUMAB [Suspect]
     Active Substance: OMALIZUMAB
     Indication: Asthma
     Route: 058
  39. OMALIZUMAB [Suspect]
     Active Substance: OMALIZUMAB
     Indication: Asthma
     Route: 058
  40. OMALIZUMAB [Suspect]
     Active Substance: OMALIZUMAB
     Indication: Asthma
     Route: 058
  41. OMALIZUMAB [Suspect]
     Active Substance: OMALIZUMAB
     Indication: Asthma
     Route: 058
  42. OMALIZUMAB [Suspect]
     Active Substance: OMALIZUMAB
     Indication: Asthma
     Route: 058
  43. OMALIZUMAB [Suspect]
     Active Substance: OMALIZUMAB
     Indication: Asthma
     Route: 058
  44. OMALIZUMAB [Suspect]
     Active Substance: OMALIZUMAB
     Indication: Asthma
     Route: 058
  45. OMALIZUMAB [Suspect]
     Active Substance: OMALIZUMAB
     Indication: Asthma
     Route: 058
  46. OMALIZUMAB [Suspect]
     Active Substance: OMALIZUMAB
     Indication: Asthma
     Route: 058
  47. OMALIZUMAB [Suspect]
     Active Substance: OMALIZUMAB
     Indication: Asthma
     Route: 058
  48. OMALIZUMAB [Suspect]
     Active Substance: OMALIZUMAB
     Indication: Asthma
     Route: 058
  49. OMALIZUMAB [Suspect]
     Active Substance: OMALIZUMAB
     Indication: Asthma
     Route: 058
  50. OMALIZUMAB [Suspect]
     Active Substance: OMALIZUMAB
     Indication: Asthma
     Route: 058
  51. OMALIZUMAB [Suspect]
     Active Substance: OMALIZUMAB
     Indication: Asthma
     Route: 058
  52. OMALIZUMAB [Suspect]
     Active Substance: OMALIZUMAB
     Indication: Asthma
     Route: 058
  53. SALMETEROL XINAFOATE [Suspect]
     Active Substance: SALMETEROL XINAFOATE
     Indication: Product used for unknown indication
     Route: 065
  54. SALMETEROL XINAFOATE [Suspect]
     Active Substance: SALMETEROL XINAFOATE
     Indication: Product used for unknown indication
     Route: 065
  55. LORAZEPAM [Concomitant]
     Active Substance: LORAZEPAM
     Indication: Product used for unknown indication
     Route: 065
  56. LORAZEPAM [Concomitant]
     Active Substance: LORAZEPAM
     Indication: Product used for unknown indication
     Route: 065
  57. SALMETEROL XINAFOATE [Concomitant]
     Active Substance: SALMETEROL XINAFOATE
     Indication: Product used for unknown indication
     Route: 065
  58. SINGULAIR [Concomitant]
     Active Substance: MONTELUKAST SODIUM
     Indication: Product used for unknown indication
     Route: 065
  59. AMLODIPINE MALEATE [Suspect]
     Active Substance: AMLODIPINE MALEATE
     Indication: Hypertension
     Route: 065
  60. ALVESCO [Concomitant]
     Active Substance: CICLESONIDE
     Indication: Product used for unknown indication
     Dosage: DOSE FORM: AEROSOL, METERED DOSE
     Route: 065
  61. BILASTINE [Concomitant]
     Active Substance: BILASTINE
     Indication: Product used for unknown indication
     Route: 065

REACTIONS (15)
  - Asthma [Not Recovered/Not Resolved]
  - Sinusitis [Not Recovered/Not Resolved]
  - Wheezing [Not Recovered/Not Resolved]
  - Product dose omission issue [Not Recovered/Not Resolved]
  - Inappropriate schedule of product administration [Not Recovered/Not Resolved]
  - Drug hypersensitivity [Not Recovered/Not Resolved]
  - Malaise [Not Recovered/Not Resolved]
  - Cough [Not Recovered/Not Resolved]
  - Dyspnoea [Not Recovered/Not Resolved]
  - Hypertension [Not Recovered/Not Resolved]
  - Illness [Not Recovered/Not Resolved]
  - Injection site pain [Not Recovered/Not Resolved]
  - Lung disorder [Not Recovered/Not Resolved]
  - Middle insomnia [Not Recovered/Not Resolved]
  - Obstructive airways disorder [Not Recovered/Not Resolved]
